FAERS Safety Report 21541262 (Version 3)
Quarter: 2023Q4

REPORT INFORMATION
  Report Type: Report from Study
  Country: AU (occurrence: AU)
  Receive Date: 20221102
  Receipt Date: 20231113
  Transmission Date: 20240109
  Serious: Yes (Hospitalization, Other)
  Sender: FDA-Public Use
  Company Number: AU-002147023-NVSC2022AU245239

PATIENT
  Age: 3 Year
  Sex: Female
  Weight: 20.3 kg

DRUGS (4)
  1. MEKINIST [Suspect]
     Active Substance: TRAMETINIB DIMETHYL SULFOXIDE
     Indication: Langerhans^ cell histiocytosis
     Dosage: 0.032 MG/KG, QD
     Route: 048
     Dates: start: 20220426, end: 20220912
  2. MEKINIST [Suspect]
     Active Substance: TRAMETINIB DIMETHYL SULFOXIDE
     Dosage: 0.025 MG/KG, QD (0.485 MG)
     Route: 048
     Dates: start: 20220913
  3. MEKINIST [Suspect]
     Active Substance: TRAMETINIB DIMETHYL SULFOXIDE
     Dosage: 0.465 MG, QD (EQUAL TO 9.3 ML)
     Route: 065
  4. MEKINIST [Suspect]
     Active Substance: TRAMETINIB DIMETHYL SULFOXIDE
     Dosage: 0.5 MG
     Route: 065

REACTIONS (6)
  - Adenovirus infection [Recovered/Resolved]
  - Pyrexia [Recovered/Resolved]
  - Anorectal discomfort [Recovered/Resolved]
  - Anorectal discomfort [Recovered/Resolved]
  - Rash papular [Recovered/Resolved]
  - Skin depigmentation [Recovered/Resolved]

NARRATIVE: CASE EVENT DATE: 20220510
